FAERS Safety Report 5465646-0 (Version None)
Quarter: 2007Q3

REPORT INFORMATION
  Report Type: 
  Country: None (occurrence: None)
  Receive Date: 20070919
  Receipt Date: 20070919
  Transmission Date: 20080115
  Serious: Yes (Hospitalization, Other)
  Sender: FDA-Public Use
  Company Number: None

PATIENT
  Age: 40 Year
  Sex: Male
  Weight: 80.7403 kg

DRUGS (1)
  1. HYDROMORPHONE HCL [Suspect]
     Indication: PANCREATITIS
     Dosage: 1 MG, ONCE, INTRAVENOUS
     Route: 042
     Dates: start: 20070829

REACTIONS (4)
  - DRUG TOXICITY [None]
  - HYPERHIDROSIS [None]
  - NAUSEA [None]
  - PAIN [None]
